FAERS Safety Report 17631213 (Version 1)
Quarter: 2020Q2

REPORT INFORMATION
  Report Type: Spontaneous
  Country: ES (occurrence: ES)
  Receive Date: 20200406
  Receipt Date: 20200406
  Transmission Date: 20200713
  Serious: Yes (Other)
  Sender: FDA-Public Use
  Company Number: ES-PFIZER INC-2020134949

PATIENT
  Age: 72 Year
  Sex: Male

DRUGS (13)
  1. LABETALOL [Suspect]
     Active Substance: LABETALOL\LABETALOL HYDROCHLORIDE
     Indication: POSTOPERATIVE HYPERTENSION
     Dosage: 15 MG/H
     Route: 041
  2. LOSARTAN. [Suspect]
     Active Substance: LOSARTAN
     Indication: POSTOPERATIVE HYPERTENSION
     Dosage: 100 MG, 1X/DAY
  3. OLMESARTAN MEDOXOMIL AND HYDROCHLOROTHIAZIDE [Concomitant]
     Active Substance: HYDROCHLOROTHIAZIDE\OLMESARTAN MEDOXOMIL
     Indication: HYPERTENSION
     Dosage: UNK UNK, QD
  4. DOXAZOSIN MESILATE [Suspect]
     Active Substance: DOXAZOSIN MESYLATE
     Indication: POSTOPERATIVE HYPERTENSION
     Dosage: 4 MG, 2X/DAY (EVERY 12H)
  5. LABETALOL [Suspect]
     Active Substance: LABETALOL\LABETALOL HYDROCHLORIDE
     Dosage: UNK MG/H, UNK
  6. ENALAPRIL [Concomitant]
     Active Substance: ENALAPRIL
     Indication: HYPERTENSION
     Dosage: 20 MG, 1X/DAY
  7. CLEVIDIPINE [Suspect]
     Active Substance: CLEVIDIPINE
     Indication: POSTOPERATIVE HYPERTENSION
     Dosage: 2 MG/H, UNK
     Route: 041
  8. CLEVIDIPINE [Suspect]
     Active Substance: CLEVIDIPINE
     Dosage: 10 MG/H, UNK
  9. ATORVASTATIN [Concomitant]
     Active Substance: ATORVASTATIN
     Indication: DYSLIPIDAEMIA
     Dosage: UNK
  10. SPIRONOLACTONE. [Suspect]
     Active Substance: SPIRONOLACTONE
     Indication: POSTOPERATIVE HYPERTENSION
     Dosage: 25 MG, 1X/DAY (EVERY DAY)
  11. CARVEDILOL. [Suspect]
     Active Substance: CARVEDILOL
     Indication: POSTOPERATIVE HYPERTENSION
     Dosage: 25 MG, 1X/DAY
  12. ACENOCOUMAROL [Concomitant]
     Active Substance: ACENOCOUMAROL
     Indication: ATRIAL FIBRILLATION
     Dosage: UNK
  13. CARVEDILOL. [Concomitant]
     Active Substance: CARVEDILOL
     Indication: HYPERTENSION
     Dosage: 25 MG, 2X/DAY (EVERY 12H)

REACTIONS (1)
  - Blood triglycerides increased [Unknown]
